FAERS Safety Report 8166903 (Version 3)
Quarter: 2014Q1

REPORT INFORMATION
  Report Type: Spontaneous
  Country: US (occurrence: US)
  Receive Date: 20111004
  Receipt Date: 20140221
  Transmission Date: 20141002
  Serious: Yes (Hospitalization)
  Sender: FDA-Public Use
  Company Number: US-BIOGENIDEC-2011BI037323

PATIENT
  Age: 60 Year
  Sex: Male

DRUGS (3)
  1. TYSABRI [Suspect]
     Indication: MULTIPLE SCLEROSIS
     Route: 042
     Dates: start: 20101201
  2. AMPYRA [Concomitant]
     Indication: GAIT DISTURBANCE
     Dates: start: 20110101
  3. AMPYRA [Concomitant]
     Indication: MULTIPLE SCLEROSIS
     Dates: start: 20110101

REACTIONS (2)
  - Joint injury [Recovered/Resolved]
  - Multiple sclerosis [Not Recovered/Not Resolved]
